FAERS Safety Report 24879856 (Version 1)
Quarter: 2025Q1

REPORT INFORMATION
  Report Type: Report from Study
  Country: US (occurrence: US)
  Receive Date: 20250123
  Receipt Date: 20250123
  Transmission Date: 20250409
  Serious: Yes (Hospitalization, Other)
  Sender: UCB
  Company Number: US-UCBSA-2025003765

PATIENT
  Age: 74 Year
  Sex: Female

DRUGS (1)
  1. BIMEKIZUMAB [Suspect]
     Active Substance: BIMEKIZUMAB
     Indication: Psoriasis

REACTIONS (2)
  - Malaise [Not Recovered/Not Resolved]
  - Cardiac infection [Not Recovered/Not Resolved]

NARRATIVE: CASE EVENT DATE: 20250117
